FAERS Safety Report 23635414 (Version 1)
Quarter: 2024Q1

REPORT INFORMATION
  Report Type: Spontaneous
  Country: US (occurrence: US)
  Receive Date: 20240315
  Receipt Date: 20240315
  Transmission Date: 20240410
  Serious: Yes (Death, Hospitalization)
  Sender: FDA-Public Use
  Company Number: US-DRL-USA-LIT/USA/24/0004200

PATIENT
  Age: 68 Year
  Sex: Male

DRUGS (6)
  1. AZACITIDINE [Suspect]
     Active Substance: AZACITIDINE
     Indication: Acute myeloid leukaemia
  2. ALLOPURINOL [Suspect]
     Active Substance: ALLOPURINOL
     Indication: Leukostasis syndrome
  3. ALLOPURINOL [Suspect]
     Active Substance: ALLOPURINOL
     Indication: Evidence based treatment
  4. VENETOCLAX [Suspect]
     Active Substance: VENETOCLAX
     Indication: Acute myeloid leukaemia
  5. HYDROXYUREA [Suspect]
     Active Substance: HYDROXYUREA
     Indication: Leukostasis syndrome
  6. HYDROXYUREA [Suspect]
     Active Substance: HYDROXYUREA
     Indication: Evidence based treatment

REACTIONS (2)
  - Disease progression [Fatal]
  - Treatment failure [Fatal]
